FAERS Safety Report 10311075 (Version 1)
Quarter: 2014Q3

REPORT INFORMATION
  Report Type: Spontaneous
  Country: CA (occurrence: None)
  Receive Date: 20140715
  Receipt Date: 20140715
  Transmission Date: 20150326
  Serious: Yes (Life-Threatening, Hospitalization, Other)
  Sender: FDA-Public Use
  Company Number: AXC-2014-00431

PATIENT
  Age: 71 Year
  Sex: Male
  Weight: 54.9 kg

DRUGS (10)
  1. ASPIRIN. [Concomitant]
     Active Substance: ASPIRIN
  2. BUDESONIDE (BUDESONIDE) [Concomitant]
     Active Substance: BUDESONIDE
  3. PERINDOPRIL (PERINDOPRIL) [Concomitant]
     Active Substance: PERINDOPRIL
  4. VITAMIN D?/00318501/ (COLECALCIFEROL) [Concomitant]
  5. CALCIUM (CALCIUM) [Concomitant]
     Active Substance: CALCIUM
  6. METFORMIN [Concomitant]
     Active Substance: METFORMIN HYDROCHLORIDE
  7. SINEMET CR (CARBIDOPA, LEVODOPA) [Concomitant]
  8. SALOFALK [Suspect]
     Active Substance: MESALAMINE
     Indication: PRODUCT USED FOR UNKNOWN INDICATION
     Route: 048
  9. CRESTOR [Concomitant]
     Active Substance: ROSUVASTATIN CALCIUM
  10. GLICLAZIDE (GLICLAZIDE) [Concomitant]
     Active Substance: GLICLAZIDE

REACTIONS (4)
  - Agranulocytosis [None]
  - Confusional state [None]
  - Pyrexia [None]
  - Asthenia [None]
